FAERS Safety Report 18312943 (Version 1)
Quarter: 2020Q3

REPORT INFORMATION
  Report Type: Spontaneous
  Country: IN (occurrence: IN)
  Receive Date: 20200925
  Receipt Date: 20200925
  Transmission Date: 20201103
  Serious: Yes (Hospitalization)
  Sender: FDA-Public Use
  Company Number: IN-BAYER-2020-200061

PATIENT
  Age: 32 Year
  Sex: Male

DRUGS (2)
  1. BACOPA MONNIERI [Concomitant]
     Dosage: UNK
  2. BAYCIP [Suspect]
     Active Substance: CIPROFLOXACIN
     Dosage: UNK
     Dates: start: 202001, end: 202001

REACTIONS (1)
  - Oral herpes [Recovered/Resolved]
